FAERS Safety Report 8170678-8 (Version None)
Quarter: 2012Q1

REPORT INFORMATION
  Report Type: 
  Country: None (occurrence: None)
  Receive Date: 20120228
  Receipt Date: 20120221
  Transmission Date: 20120608
  Serious: Yes (Other)
  Sender: FDA-Public Use
  Company Number: AU-PFIZER INC-2012045841

PATIENT
  Sex: Female

DRUGS (3)
  1. DEPO-NISOLONE [Suspect]
     Dosage: UNK
     Route: 014
     Dates: start: 20111201, end: 20111201
  2. ACETAMINOPHEN W/ CODEINE [Concomitant]
     Indication: BACK DISORDER
  3. ACETAMINOPHEN W/ CODEINE [Concomitant]
     Indication: ARTHRALGIA

REACTIONS (11)
  - CEREBROVASCULAR ACCIDENT [None]
  - AGITATION [None]
  - INSOMNIA [None]
  - NAUSEA [None]
  - URINARY TRACT INFECTION [None]
  - DIZZINESS [None]
  - HYPERHIDROSIS [None]
  - HOT FLUSH [None]
  - SKIN EXFOLIATION [None]
  - ANXIETY [None]
  - HEADACHE [None]
